FAERS Safety Report 18960078 (Version 1)
Quarter: 2021Q1

REPORT INFORMATION
  Report Type: Spontaneous
  Country: US (occurrence: US)
  Receive Date: 20210302
  Receipt Date: 20210302
  Transmission Date: 20210420
  Serious: No
  Sender: FDA-Public Use
  Company Number: US-MYLANLABS-2021M1010586

PATIENT
  Age: 32 Year
  Sex: Female
  Weight: 56 kg

DRUGS (1)
  1. XULANE [Suspect]
     Active Substance: ETHINYL ESTRADIOL\NORELGESTROMIN
     Indication: CONTRACEPTION
     Dosage: 35/150 MCG QW
     Route: 062

REACTIONS (2)
  - Product adhesion issue [Recovered/Resolved]
  - Application site swelling [Recovered/Resolved]

NARRATIVE: CASE EVENT DATE: 20210203
